FAERS Safety Report 9588873 (Version 1)
Quarter: 2013Q4

REPORT INFORMATION
  Report Type: Spontaneous
  Country: US (occurrence: US)
  Receive Date: 20131003
  Receipt Date: 20131003
  Transmission Date: 20140711
  Serious: No
  Sender: FDA-Public Use
  Company Number: US-AMGEN-USASP2012066980

PATIENT
  Sex: Female
  Weight: 49.89 kg

DRUGS (8)
  1. ENBREL [Suspect]
     Indication: PSORIATIC ARTHROPATHY
     Dosage: 50 MG, QWK
     Route: 058
  2. SYNTHROID [Concomitant]
     Dosage: 88 MUG, UNK
  3. ABILIFY [Concomitant]
     Dosage: 5 MG, UNK
  4. HYDROCHLOROTH [Concomitant]
     Dosage: 50 MG, UNK
  5. VITAMIN D                          /00107901/ [Concomitant]
     Dosage: 1000 UNIT, UNK
  6. WELLBUTRIN [Concomitant]
     Dosage: 75 MG, UNK
  7. POTASSIUM CHLORIDE [Concomitant]
     Dosage: 10 MEQ, CR, UNK
  8. PERCOCET                           /00867901/ [Concomitant]
     Dosage: 10-325 MG, UNK

REACTIONS (3)
  - Injection site pruritus [Unknown]
  - Injection site swelling [Unknown]
  - Injection site erythema [Unknown]
